FAERS Safety Report 21940953 (Version 1)
Quarter: 2023Q1

REPORT INFORMATION
  Report Type: Report from Study
  Country: US (occurrence: US)
  Receive Date: 20230202
  Receipt Date: 20230202
  Transmission Date: 20230418
  Serious: No
  Sender: FDA-Public Use
  Company Number: US-EXELIXIS-CABO-22052624

PATIENT
  Sex: Male

DRUGS (14)
  1. CABOMETYX [Suspect]
     Active Substance: CABOZANTINIB S-MALATE
     Indication: Thyroid cancer metastatic
     Dosage: 40 MG, QD
     Dates: start: 20220524, end: 20220628
  2. CABOMETYX [Suspect]
     Active Substance: CABOZANTINIB S-MALATE
     Indication: Metastases to bone
     Dosage: 20 MG
     Dates: start: 20220721
  3. CABOMETYX [Suspect]
     Active Substance: CABOZANTINIB S-MALATE
     Indication: Metastases to lung
  4. AMLODIPINE [Concomitant]
     Active Substance: AMLODIPINE BESYLATE
     Dosage: UNK
  5. CELECOXIB [Concomitant]
     Active Substance: CELECOXIB
     Dosage: UNK
  6. DULOXETINE [Concomitant]
     Active Substance: DULOXETINE
     Dosage: UNK
  7. ELIQUIS [Concomitant]
     Active Substance: APIXABAN
     Dosage: UNK
  8. GABAPENTIN [Concomitant]
     Active Substance: GABAPENTIN
     Dosage: UNK
  9. LEVOTHYROXINE SODIUM [Concomitant]
     Active Substance: LEVOTHYROXINE SODIUM
     Dosage: UNK
  10. MS CONTIN [Concomitant]
     Active Substance: MORPHINE SULFATE
     Dosage: UNK
  11. OMEPRAZOLE [Concomitant]
     Active Substance: OMEPRAZOLE
     Dosage: UNK
  12. VITAMINS [Concomitant]
     Active Substance: VITAMINS
     Dosage: UNK
  13. OXYCODONE [Concomitant]
     Active Substance: OXYCODONE
     Dosage: UNK
  14. VITAMIN D3 [Concomitant]
     Active Substance: CHOLECALCIFEROL
     Dosage: UNK

REACTIONS (5)
  - Blister [Recovering/Resolving]
  - Skin exfoliation [Not Recovered/Not Resolved]
  - Skin ulcer [Recovered/Resolved]
  - Fatigue [Recovering/Resolving]
  - Asthenia [Not Recovered/Not Resolved]
